FAERS Safety Report 5015429-0 (Version None)
Quarter: 2006Q2

REPORT INFORMATION
  Report Type: 
  Country: None (occurrence: None)
  Receive Date: 20060601
  Receipt Date: 20060523
  Transmission Date: 20061013
  Serious: Yes (Hospitalization)
  Sender: FDA-Public Use
  Company Number: US-JNJFOC-20060505145

PATIENT
  Age: 16 Year
  Sex: Female

DRUGS (3)
  1. RISPERDAL [Suspect]
     Route: 048
  2. RISPERDAL [Suspect]
     Dosage: 1-2 MG DAILY
     Route: 048
  3. GEODON [Concomitant]
     Indication: DEPRESSION
     Route: 048

REACTIONS (1)
  - PITUITARY TUMOUR BENIGN [None]
